FAERS Safety Report 5971259-4 (Version None)
Quarter: 2008Q4

REPORT INFORMATION
  Report Type: 
  Country: None (occurrence: None)
  Receive Date: 20081128
  Receipt Date: 20081124
  Transmission Date: 20090506
  Serious: Yes (Disabling, Other)
  Sender: FDA-Public Use
  Company Number: US-PFIZER INC-2008076375

PATIENT
  Sex: Female

DRUGS (3)
  1. CELEBREX [Suspect]
  2. NEURONTIN [Suspect]
  3. LYRICA [Suspect]

REACTIONS (3)
  - COMPLEX REGIONAL PAIN SYNDROME [None]
  - MONARTHRITIS [None]
  - RETINAL HAEMORRHAGE [None]
